FAERS Safety Report 6809679-8 (Version None)
Quarter: 2010Q2

REPORT INFORMATION
  Report Type: 
  Country: None (occurrence: None)
  Receive Date: 20100630
  Receipt Date: 20100621
  Transmission Date: 20101027
  Serious: Yes (Other)
  Sender: FDA-Public Use
  Company Number: US-PFIZER INC-2010077604

PATIENT
  Sex: Male
  Weight: 81.2 kg

DRUGS (1)
  1. VIAGRA [Suspect]
     Indication: ERECTILE DYSFUNCTION
     Dosage: 100 MG, 1X/DAY
     Route: 048
     Dates: end: 20100614

REACTIONS (7)
  - ABDOMINAL PAIN UPPER [None]
  - APHAGIA [None]
  - BLOOD URINE PRESENT [None]
  - CHEST PAIN [None]
  - DYSPEPSIA [None]
  - HEADACHE [None]
  - MYALGIA [None]
